FAERS Safety Report 4520212-6 (Version None)
Quarter: 2004Q4

REPORT INFORMATION
  Report Type: 
  Country: None (occurrence: None)
  Receive Date: 20041022
  Receipt Date: 20040706
  Transmission Date: 20050328
  Serious: No
  Sender: FDA-Public Use
  Company Number: 2004222598US

PATIENT
  Age: 76 Year
  Sex: Male
  Weight: 72.6 kg

DRUGS (16)
  1. INSPRA [Suspect]
     Indication: CARDIAC DISORDER
     Dosage: 25 MG, QD, ORAL
     Route: 048
     Dates: start: 20040622, end: 20040710
  2. SYNTHROID [Concomitant]
  3. AMIODARONE (AMIODARONE) [Concomitant]
  4. COREG [Concomitant]
  5. COZAAR [Concomitant]
  6. PLAVIX [Concomitant]
  7. ZETIA [Concomitant]
  8. LASIX [Concomitant]
  9. DIGOXIN [Concomitant]
  10. TRICOR [Concomitant]
  11. ZOCOR [Concomitant]
  12. ZYPREXA [Concomitant]
  13. ASPIRIN [Concomitant]
  14. VITAMIN C [Concomitant]
  15. VITAMIN B6 [Concomitant]
  16. OMEGA-3 [Concomitant]

REACTIONS (3)
  - DRY THROAT [None]
  - PHARYNGOLARYNGEAL PAIN [None]
  - SPEECH DISORDER [None]
